FAERS Safety Report 9490480 (Version 2)
Quarter: 2013Q3

REPORT INFORMATION
  Report Type: Spontaneous
  Country: CA (occurrence: CA)
  Receive Date: 20130830
  Receipt Date: 20130830
  Transmission Date: 20140515
  Serious: Yes (Death, Other)
  Sender: FDA-Public Use
  Company Number: CA-ALVOGEN-2013AL000469

PATIENT
  Age: 93 Year
  Sex: Male

DRUGS (2)
  1. MACROBID [Suspect]
     Indication: URINARY TRACT INFECTION
     Route: 048
     Dates: start: 2012, end: 2012
  2. MOXIFLOXACIN HYDROCHLORIDE [Suspect]
     Indication: PNEUMONIA
     Route: 048
     Dates: start: 2012, end: 2012

REACTIONS (5)
  - Coma [Fatal]
  - Confusional state [Fatal]
  - Hallucination [Fatal]
  - Fall [Fatal]
  - VIIth nerve paralysis [Recovering/Resolving]
